FAERS Safety Report 9685995 (Version 2)
Quarter: 2013Q4

REPORT INFORMATION
  Report Type: Spontaneous
  Country: US (occurrence: US)
  Receive Date: 20131113
  Receipt Date: 20131113
  Transmission Date: 20140711
  Serious: No
  Sender: FDA-Public Use
  Company Number: US-ALLERGAN-1305235US

PATIENT
  Age: 79 Year
  Sex: Female

DRUGS (4)
  1. COMBIGAN[R] [Suspect]
     Indication: GLAUCOMA
     Dosage: 2 GTT, BID
     Route: 047
     Dates: start: 20130327, end: 20130410
  2. COMBIGAN[R] [Suspect]
     Dosage: 2 GTT, BID
     Route: 047
     Dates: start: 20130327
  3. REFRESH PLUS [Concomitant]
     Indication: EYE PAIN
     Dosage: UNK, PRN
     Route: 047
  4. TRAVATAN [Concomitant]
     Indication: GLAUCOMA
     Dosage: 2 GTT, QAM

REACTIONS (4)
  - Fatigue [Recovered/Resolved]
  - Dry mouth [Recovered/Resolved]
  - Dizziness [Recovered/Resolved]
  - Dizziness [Recovered/Resolved]
